FAERS Safety Report 9734694 (Version 1)
Quarter: 2013Q4

REPORT INFORMATION
  Report Type: Spontaneous
  Country: US (occurrence: None)
  Receive Date: 20131204
  Receipt Date: 20131204
  Transmission Date: 20140711
  Serious: No
  Sender: FDA-Public Use
  Company Number: None

PATIENT
  Age: 55 Year
  Sex: Male
  Weight: 79.4 kg

DRUGS (1)
  1. IMATINIB [Suspect]
     Indication: CHRONIC LEUKAEMIA
     Route: 048
     Dates: start: 20131029, end: 20131106

REACTIONS (4)
  - Confusional state [None]
  - Delirium [None]
  - Hyperammonaemia [None]
  - Hepatic encephalopathy [None]
